FAERS Safety Report 9161104 (Version 2)
Quarter: 2013Q1

REPORT INFORMATION
  Report Type: Spontaneous
  Country: US (occurrence: US)
  Receive Date: 20130313
  Receipt Date: 20130319
  Transmission Date: 20140127
  Serious: Yes (Other)
  Sender: FDA-Public Use
  Company Number: CHPA2011US02361

PATIENT
  Age: 89 Year
  Sex: Female
  Weight: 52.15 kg

DRUGS (1)
  1. VOLTAREN GEL [Suspect]
     Indication: ARTHRITIS
     Dosage: 2 CM, 3-4 TIMES A DAY
     Route: 061
     Dates: start: 20110201

REACTIONS (7)
  - Arthralgia [Unknown]
  - Neoplasm progression [Recovered/Resolved]
  - Off label use [Unknown]
  - Therapeutic response unexpected [Unknown]
  - Disease recurrence [Unknown]
  - Underdose [Unknown]
  - Drug administered at inappropriate site [Unknown]
